FAERS Safety Report 13781056 (Version 1)
Quarter: 2017Q3

REPORT INFORMATION
  Report Type: Spontaneous
  Country: US (occurrence: US)
  Receive Date: 20170722
  Receipt Date: 20170722
  Transmission Date: 20171127
  Serious: Yes (Other)
  Sender: FDA-Public Use
  Company Number: None

PATIENT
  Age: 76 Year
  Sex: Female
  Weight: 53.1 kg

DRUGS (11)
  1. MIRALAX [Concomitant]
     Active Substance: POLYETHYLENE GLYCOL 3350
  2. IBGUARD [Concomitant]
  3. VITAMIN C [Concomitant]
     Active Substance: ASCORBIC ACID
  4. DEXILANT [Concomitant]
     Active Substance: DEXLANSOPRAZOLE
  5. ELIQUIS [Suspect]
     Active Substance: APIXABAN
     Indication: ATRIAL FIBRILLATION
     Dosage: ?          OTHER STRENGTH:MG;QUANTITY:1 TABLET(S);OTHER ROUTE:MOUTH?
     Route: 048
     Dates: start: 20170621
  6. TRAMADOL. [Concomitant]
     Active Substance: TRAMADOL
  7. QVAR [Concomitant]
     Active Substance: BECLOMETHASONE DIPROPIONATE
  8. MAGNESIUM [Concomitant]
     Active Substance: MAGNESIUM
  9. MULTI [Concomitant]
  10. SYSTANE EYEDROPS [Concomitant]
     Active Substance: POLYETHYLENE GLYCOL 400\PROPYLENE GLYCOL
  11. ARMOUR THYROID [Concomitant]
     Active Substance: THYROID, PORCINE

REACTIONS (5)
  - Lactose intolerance [None]
  - Irritable bowel syndrome [None]
  - Constipation [None]
  - Gastric disorder [None]
  - Abdominal distension [None]

NARRATIVE: CASE EVENT DATE: 20170622
